FAERS Safety Report 11507318 (Version 1)
Quarter: 2015Q3

REPORT INFORMATION
  Report Type: Spontaneous
  Country: IN (occurrence: IN)
  Receive Date: 20150915
  Receipt Date: 20150915
  Transmission Date: 20151125
  Serious: Yes (Hospitalization, Other)
  Sender: FDA-Public Use
  Company Number: IN-SEBELA IRELAND LIMITED-2015SEB00077

PATIENT
  Age: 29 Year
  Sex: Female

DRUGS (2)
  1. ACECLOFENAC [Concomitant]
     Active Substance: ACECLOFENAC
     Indication: PAIN
     Dosage: 100 MG, 2X/DAY
  2. HYDROCORTISONE. [Suspect]
     Active Substance: HYDROCORTISONE
     Indication: PLANTAR FASCIITIS
     Dosage: UNK UNK, ONCE
     Route: 050
     Dates: start: 201108, end: 201108

REACTIONS (4)
  - Staphylococcal abscess [Recovered/Resolved]
  - Injection site abscess [Recovered/Resolved]
  - Compartment syndrome [Recovered/Resolved]
  - Joint contracture [Not Recovered/Not Resolved]

NARRATIVE: CASE EVENT DATE: 2011
